FAERS Safety Report 7418967-6 (Version None)
Quarter: 2011Q2

REPORT INFORMATION
  Report Type: 
  Country: None (occurrence: None)
  Receive Date: 20110415
  Receipt Date: 20110403
  Transmission Date: 20111010
  Serious: Yes (Other)
  Sender: FDA-Public Use
  Company Number: US-BAYER-2010-008947

PATIENT
  Age: 47 Year
  Sex: Female
  Weight: 86 kg

DRUGS (2)
  1. YAZ [Suspect]
     Indication: ACNE
  2. YAZ [Suspect]
     Indication: CONTRACEPTION
     Dosage: UNK
     Dates: start: 20080129, end: 20080202

REACTIONS (10)
  - ANXIETY [None]
  - BACK PAIN [None]
  - EMOTIONAL DISTRESS [None]
  - DIZZINESS [None]
  - PULMONARY EMBOLISM [None]
  - PAIN [None]
  - INJURY [None]
  - NON-CARDIAC CHEST PAIN [None]
  - CHEST DISCOMFORT [None]
  - HEART RATE IRREGULAR [None]
